FAERS Safety Report 8306275-0 (Version None)
Quarter: 2012Q2

REPORT INFORMATION
  Report Type: 
  Country: None (occurrence: None)
  Receive Date: 20120423
  Receipt Date: 20120417
  Transmission Date: 20120825
  Serious: Yes (Death)
  Sender: FDA-Public Use
  Company Number: CA-PFIZER INC-2012095891

PATIENT
  Age: 12 Month
  Sex: Male
  Weight: 8.6 kg

DRUGS (5)
  1. LASIX [Concomitant]
     Indication: DIURETIC THERAPY
     Dosage: UNK
     Route: 048
  2. ALDACTAZIDE [Concomitant]
     Indication: DIURETIC THERAPY
     Dosage: UNK
     Route: 048
  3. VENTOLIN [Concomitant]
     Indication: BRONCHOSPASM
     Dosage: UNK
     Route: 055
  4. BUDESONIDE [Concomitant]
     Indication: BRONCHOSPASM
     Dosage: UNK
     Route: 055
  5. SILDENAFIL CITRATE [Suspect]
     Indication: PULMONARY HYPERTENSION
     Dosage: 6.25 MG, 4X/DAY
     Route: 048
     Dates: start: 20111212

REACTIONS (1)
  - DEATH [None]
